FAERS Safety Report 5008442-0 (Version None)
Quarter: 2006Q2

REPORT INFORMATION
  Report Type: 
  Country: None (occurrence: None)
  Receive Date: 20060522
  Receipt Date: 20060522
  Transmission Date: 20061013
  Serious: Yes (Hospitalization)
  Sender: FDA-Public Use
  Company Number: None

PATIENT
  Age: 39 Year
  Sex: Male

DRUGS (5)
  1. VANCOMYCIN [Suspect]
     Dosage: 1.25 G Q12 HR IV
     Route: 042
     Dates: start: 20050816, end: 20050826
  2. EFFEXOR [Concomitant]
  3. TYLENOL (GELTAB) [Concomitant]
  4. CONCERTA [Concomitant]
  5. TRAZODONE HCL [Concomitant]

REACTIONS (2)
  - CONDITION AGGRAVATED [None]
  - PYREXIA [None]
